FAERS Safety Report 13797561 (Version 2)
Quarter: 2019Q2

REPORT INFORMATION
  Report Type: Spontaneous
  Country: BR (occurrence: BR)
  Receive Date: 20170727
  Receipt Date: 20190405
  Transmission Date: 20190711
  Serious: Yes (Other)
  Sender: FDA-Public Use
  Company Number: BR-ROCHE-1950672

PATIENT
  Age: 84 Year
  Sex: Female

DRUGS (8)
  1. RIVOTRIL [Suspect]
     Active Substance: CLONAZEPAM
     Indication: PANIC ATTACK
     Route: 065
     Dates: start: 2017
  2. RIVOTRIL [Suspect]
     Active Substance: CLONAZEPAM
     Dosage: INCREASED THE DOSE TO 4 DROPS PER DAY, SHE INCREASED THE DOSE TO 3 DROPS
     Route: 065
     Dates: start: 201702
  3. SIMVASTATIN. [Concomitant]
     Active Substance: SIMVASTATIN
     Indication: BLOOD CHOLESTEROL ABNORMAL
  4. ATORVASTATIN [Concomitant]
     Active Substance: ATORVASTATIN
     Indication: BLOOD CHOLESTEROL ABNORMAL
  5. CAPTOPRIL. [Concomitant]
     Active Substance: CAPTOPRIL
     Route: 065
  6. DIAZEPAM. [Suspect]
     Active Substance: DIAZEPAM
     Indication: HYPERTENSION
     Route: 065
  7. RIVOTRIL [Suspect]
     Active Substance: CLONAZEPAM
     Route: 065
     Dates: start: 2017
  8. RIVOTRIL [Suspect]
     Active Substance: CLONAZEPAM
     Indication: ANXIETY
     Route: 065
     Dates: start: 2017

REACTIONS (34)
  - Rhinorrhoea [Not Recovered/Not Resolved]
  - Back injury [Not Recovered/Not Resolved]
  - Pain [Not Recovered/Not Resolved]
  - Product dose omission [Unknown]
  - Decreased appetite [Not Recovered/Not Resolved]
  - Tinnitus [Not Recovered/Not Resolved]
  - Eye irritation [Not Recovered/Not Resolved]
  - Fall [Unknown]
  - Intentional product use issue [Unknown]
  - Dizziness [Unknown]
  - Insomnia [Recovered/Resolved]
  - Muscular weakness [Unknown]
  - Panic disorder [Unknown]
  - Hypertension [Not Recovered/Not Resolved]
  - Labyrinthitis [Unknown]
  - Head discomfort [Not Recovered/Not Resolved]
  - Feeling abnormal [Unknown]
  - Nightmare [Unknown]
  - Hallucination, auditory [Unknown]
  - Memory impairment [Not Recovered/Not Resolved]
  - Depression [Not Recovered/Not Resolved]
  - Malaise [Unknown]
  - Off label use [Unknown]
  - Motion sickness [Not Recovered/Not Resolved]
  - Abdominal discomfort [Not Recovered/Not Resolved]
  - Dry mouth [Not Recovered/Not Resolved]
  - Balance disorder [Not Recovered/Not Resolved]
  - Hallucination [Unknown]
  - Nervousness [Not Recovered/Not Resolved]
  - Chest injury [Unknown]
  - Fear [Not Recovered/Not Resolved]
  - Nausea [Unknown]
  - Back pain [Not Recovered/Not Resolved]
  - Urinary incontinence [Not Recovered/Not Resolved]

NARRATIVE: CASE EVENT DATE: 20170714
